FAERS Safety Report 7356820-7 (Version None)
Quarter: 2011Q1

REPORT INFORMATION
  Report Type: 
  Country: None (occurrence: None)
  Receive Date: 20110317
  Receipt Date: 20110308
  Transmission Date: 20110831
  Serious: Yes (Other)
  Sender: FDA-Public Use
  Company Number: US-ELI_LILLY_AND_COMPANY-US201103003133

PATIENT
  Sex: Male
  Weight: 95.238 kg

DRUGS (6)
  1. VITAMIN B-12 [Concomitant]
     Indication: PREMEDICATION
     Dates: start: 20110129
  2. FOLIC ACID [Concomitant]
     Indication: PREMEDICATION
     Dates: start: 20110119
  3. PEMETREXED [Suspect]
     Indication: NON-SMALL CELL LUNG CANCER
     Dosage: 500 MG/M2, OTHER
     Route: 042
     Dates: start: 20110126
  4. DEXAMETHASONE [Concomitant]
     Indication: PREMEDICATION
     Dates: start: 20110125
  5. ZAROXOLYN [Concomitant]
     Indication: OEDEMA
     Dates: start: 20110302
  6. CARBOPLATIN [Suspect]
     Indication: NON-SMALL CELL LUNG CANCER
     Dosage: 6 D/F, OTHER
     Route: 042
     Dates: start: 20110126

REACTIONS (2)
  - OEDEMA PERIPHERAL [None]
  - DYSPNOEA [None]
